FAERS Safety Report 5545483-9 (Version None)
Quarter: 2007Q4

REPORT INFORMATION
  Report Type: 
  Country: None (occurrence: None)
  Receive Date: 20071211
  Receipt Date: 20071206
  Transmission Date: 20080405
  Serious: Yes (Hospitalization, Other)
  Sender: FDA-Public Use
  Company Number: BR-ASTRAZENECA-2007UW27824

PATIENT
  Age: 34 Year
  Sex: Female
  Weight: 58 kg

DRUGS (1)
  1. XYLOPROCT [Suspect]
     Indication: HAEMORRHOID OPERATION
     Route: 054
     Dates: start: 20071123, end: 20071125

REACTIONS (6)
  - HALLUCINATION [None]
  - MALAISE [None]
  - NAUSEA [None]
  - NERVOUSNESS [None]
  - PROCTALGIA [None]
  - WEIGHT DECREASED [None]
